FAERS Safety Report 6966357-2 (Version None)
Quarter: 2010Q3

REPORT INFORMATION
  Report Type: 
  Country: None (occurrence: None)
  Receive Date: 20100903
  Receipt Date: 20100826
  Transmission Date: 20110219
  Serious: Yes (Hospitalization)
  Sender: FDA-Public Use
  Company Number: CA-ROCHE-718948

PATIENT
  Sex: Male
  Weight: 66 kg

DRUGS (7)
  1. TOCILIZUMAB [Suspect]
     Indication: RHEUMATOID ARTHRITIS
     Dosage: DOSAGE FORM: INFUSION SOLUTION, TEMPORARILY STOPPED.
     Route: 042
  2. METHOTREXATE [Concomitant]
     Dosage: BIS
     Dates: start: 20080918
  3. APO-FOLIC [Concomitant]
     Dates: start: 20080918
  4. APO-HYDROXYQUINE [Concomitant]
     Dates: start: 20080820
  5. DICLOFENAC [Concomitant]
     Dates: start: 20080827, end: 20100501
  6. LIPITOR [Concomitant]
     Dates: start: 20091113
  7. QUETIAPINE [Concomitant]
     Dates: start: 20090324

REACTIONS (1)
  - HAEMOPTYSIS [None]
